FAERS Safety Report 18048518 (Version 2)
Quarter: 2020Q3

REPORT INFORMATION
  Report Type: Spontaneous
  Country: CH (occurrence: CH)
  Receive Date: 20200721
  Receipt Date: 20200825
  Transmission Date: 20201103
  Serious: Yes (Other)
  Sender: FDA-Public Use
  Company Number: NVSC2020CH201310

PATIENT
  Age: 16 Month
  Sex: Male

DRUGS (1)
  1. CO?AMOXICILLIN SANDOZ 312,5, PULVER ZUR ZUBEREITUNG EINER SUSPEN [Suspect]
     Active Substance: AMOXICILLIN\CLAVULANIC ACID
     Indication: PRODUCT USED FOR UNKNOWN INDICATION
     Dosage: 312.5 MG
     Route: 065

REACTIONS (4)
  - Product physical consistency issue [Unknown]
  - Product colour issue [Unknown]
  - Product odour abnormal [Unknown]
  - Pyrexia [Unknown]
